FAERS Safety Report 17209563 (Version 3)
Quarter: 2020Q1

REPORT INFORMATION
  Report Type: Report from Study
  Country: US (occurrence: US)
  Receive Date: 20191227
  Receipt Date: 20200214
  Transmission Date: 20200409
  Serious: Yes (Death)
  Sender: FDA-Public Use
  Company Number: US-ACTELION-A-US2019-199737

PATIENT
  Sex: Male
  Weight: 81.63 kg

DRUGS (3)
  1. ESBRIET [Concomitant]
     Active Substance: PIRFENIDONE
  2. SILDENAFIL CITRATE. [Concomitant]
     Active Substance: SILDENAFIL CITRATE
  3. OPSUMIT [Suspect]
     Active Substance: MACITENTAN
     Indication: PULMONARY ARTERIAL HYPERTENSION
     Dosage: 10 MG, QD
     Route: 048
     Dates: end: 20191201

REACTIONS (2)
  - Idiopathic pulmonary fibrosis [Fatal]
  - Respiratory failure [Fatal]
